FAERS Safety Report 24191453 (Version 1)
Quarter: 2024Q3

REPORT INFORMATION
  Report Type: Spontaneous
  Country: US (occurrence: US)
  Receive Date: 20240808
  Receipt Date: 20240808
  Transmission Date: 20241016
  Serious: No
  Sender: JOHNSON AND JOHNSON
  Company Number: US-JNJFOC-20240749171

PATIENT
  Age: 57 Year
  Sex: Female

DRUGS (1)
  1. ZYRTEC [Suspect]
     Active Substance: CETIRIZINE HYDROCHLORIDE
     Indication: Hypersensitivity
     Dosage: 1 CAPLET A DAY 1X DAY
     Route: 065

REACTIONS (3)
  - Skin burning sensation [Unknown]
  - Oral discomfort [Unknown]
  - Oral pain [Unknown]

NARRATIVE: CASE EVENT DATE: 20240716
